FAERS Safety Report 10615345 (Version 1)
Quarter: 2014Q4

REPORT INFORMATION
  Report Type: Spontaneous
  Country: US (occurrence: US)
  Receive Date: 20141201
  Receipt Date: 20141201
  Transmission Date: 20150529
  Serious: No
  Sender: FDA-Public Use
  Company Number: US-PFIZER INC-2014323700

PATIENT
  Age: 6 Year
  Sex: Male
  Weight: 27 kg

DRUGS (1)
  1. JUNIOR STRENGTH ADVIL [Suspect]
     Active Substance: IBUPROFEN
     Indication: PYREXIA
     Dosage: 2 AND 1/2 CAPS, UNK
     Dates: start: 201411

REACTIONS (3)
  - Psychotic disorder [Unknown]
  - Hallucination [Unknown]
  - Middle insomnia [Unknown]

NARRATIVE: CASE EVENT DATE: 20141122
